FAERS Safety Report 6398397-9 (Version None)
Quarter: 2009Q4

REPORT INFORMATION
  Report Type: 
  Country: None (occurrence: None)
  Receive Date: 20091013
  Receipt Date: 20091002
  Transmission Date: 20100525
  Serious: Yes (Life-Threatening, Hospitalization)
  Sender: FDA-Public Use
  Company Number: AT-JNJFOC-20091001625

PATIENT
  Age: 33 Year
  Sex: Female
  Weight: 72 kg

DRUGS (8)
  1. REMICADE [Suspect]
     Dosage: RECEIVED 5 DOSES OF 800 MG.
     Route: 042
     Dates: start: 20051219, end: 20061109
  2. REMICADE [Suspect]
     Dosage: RECEIVED 5 DOSES OF 800 MG.
     Route: 042
     Dates: start: 20051219, end: 20061109
  3. REMICADE [Suspect]
     Dosage: RECEIVED 5 DOSES OF 800 MG.
     Route: 042
     Dates: start: 20051219, end: 20061109
  4. REMICADE [Suspect]
     Dosage: RECEIVED 5 DOSES OF 800 MG.
     Route: 042
     Dates: start: 20051219, end: 20061109
  5. REMICADE [Suspect]
     Dosage: RECEIVED 5 DOSES OF 800 MG.
     Route: 042
     Dates: start: 20051219, end: 20061109
  6. REMICADE [Suspect]
     Dosage: RECEIVED 3 DOSES OF 400 MG
     Route: 042
     Dates: start: 20051219, end: 20061109
  7. REMICADE [Suspect]
     Dosage: RECEIVED 3 DOSES OF 400 MG
     Route: 042
     Dates: start: 20051219, end: 20061109
  8. REMICADE [Suspect]
     Indication: CROHN'S DISEASE
     Dosage: RECEIVED 3 DOSES OF 400 MG
     Route: 042
     Dates: start: 20051219, end: 20061109

REACTIONS (2)
  - FISTULA [None]
  - INFLAMMATION [None]
